FAERS Safety Report 5360676-1 (Version None)
Quarter: 2007Q2

REPORT INFORMATION
  Report Type: 
  Country: None (occurrence: None)
  Receive Date: 20070618
  Receipt Date: 20070605
  Transmission Date: 20071010
  Serious: Yes (Other)
  Sender: FDA-Public Use
  Company Number: AU-ROCHE-500713

PATIENT
  Age: 69 Year
  Sex: Male

DRUGS (3)
  1. INTERFERON ALFA-2A [Suspect]
     Indication: DRUG USE FOR UNKNOWN INDICATION
     Dosage: DOSAGE REGIMEN REPORTED AS: 2.1 DOSAGE UNIT DAILY.
     Route: 065
     Dates: start: 20030801
  2. METHOTREXATE [Suspect]
     Indication: DRUG USE FOR UNKNOWN INDICATION
     Route: 048
     Dates: start: 20031201, end: 20041231
  3. METHOTREXATE [Suspect]
     Route: 048
     Dates: start: 20040101, end: 20040601

REACTIONS (1)
  - LYMPHOPROLIFERATIVE DISORDER [None]
